FAERS Safety Report 4549749-0 (Version None)
Quarter: 2004Q4

REPORT INFORMATION
  Report Type: 
  Country: None (occurrence: None)
  Receive Date: 20041227
  Receipt Date: 20040914
  Transmission Date: 20050328
  Serious: No
  Sender: FDA-Public Use
  Company Number: 04P-163-0273199-00

PATIENT
  Age: 76 Year
  Sex: Female
  Weight: 58.0604 kg

DRUGS (7)
  1. HUMIRA [Suspect]
     Indication: RHEUMATOID ARTHRITIS
     Dosage: 40 MG, 1 IN 1 WK, SUBCUTANEOUS
     Route: 058
     Dates: start: 20030701, end: 20040903
  2. PREDNISONE [Concomitant]
  3. PHENAGLYCODOL [Concomitant]
  4. ATENOLOL [Concomitant]
  5. METOCLOPRAMIDE [Concomitant]
  6. LORAZEPAM [Concomitant]
  7. AMOXICILLIN AND CLAVULANATE POTASSIUM [Concomitant]

REACTIONS (1)
  - URINARY TRACT INFECTION [None]
